FAERS Safety Report 7221472-3 (Version None)
Quarter: 2011Q1

REPORT INFORMATION
  Report Type: 
  Country: None (occurrence: None)
  Receive Date: 20110112
  Receipt Date: 20101222
  Transmission Date: 20110831
  Serious: No
  Sender: FDA-Public Use
  Company Number: US-B.I. PHARMACEUTICALS,INC./RIDGEFIELD-2010-BP-15379BP

PATIENT
  Sex: Female

DRUGS (5)
  1. ATENOLOL [Concomitant]
     Route: 048
  2. LISINOPRIL [Concomitant]
     Route: 048
  3. MICARDIS [Suspect]
     Indication: HYPERTENSION
     Dosage: 40 MG
     Route: 048
     Dates: start: 20091201
  4. XANAX [Concomitant]
     Indication: DEPRESSION
     Route: 048
  5. FUROSEMIDE [Concomitant]
     Route: 048

REACTIONS (1)
  - ALOPECIA [None]
